FAERS Safety Report 23193880 (Version 2)
Quarter: 2023Q4

REPORT INFORMATION
  Report Type: Spontaneous
  Country: MX (occurrence: MX)
  Receive Date: 20231116
  Receipt Date: 20231128
  Transmission Date: 20240110
  Serious: Yes (Life-Threatening, Hospitalization)
  Sender: FDA-Public Use
  Company Number: MX-GENMAB-2023-02138

PATIENT
  Age: 54 Year
  Sex: Female
  Weight: 72 kg

DRUGS (8)
  1. EPCORITAMAB [Suspect]
     Active Substance: EPCORITAMAB
     Indication: Follicular lymphoma
     Dosage: 160 MICROGRAM 1 DAYS
     Route: 058
     Dates: start: 20231026, end: 20231026
  2. EPCORITAMAB [Suspect]
     Active Substance: EPCORITAMAB
     Dosage: 800 MICROGRAM 1 DAYS
     Route: 058
     Dates: start: 20231101, end: 20231101
  3. EPCORITAMAB [Suspect]
     Active Substance: EPCORITAMAB
     Dosage: 48 MILLIGRAM 1 DAYS
     Route: 058
     Dates: start: 20231108, end: 20231108
  4. ACETAMINOPHEN [Concomitant]
     Active Substance: ACETAMINOPHEN
     Indication: Premedication
     Dosage: 1 GRAM
     Route: 065
     Dates: start: 20231101, end: 20231108
  5. PREDNISONE ACETATE [Concomitant]
     Active Substance: PREDNISONE ACETATE
     Indication: Premedication
     Dosage: 25 MILLIGRAM
     Route: 065
     Dates: start: 20231101, end: 20231101
  6. PREDNISONE ACETATE [Concomitant]
     Active Substance: PREDNISONE ACETATE
     Dosage: 50 MILLIGRAM
     Route: 065
     Dates: start: 20231108, end: 20231108
  7. CHLORPHENIRAMINE [Concomitant]
     Active Substance: CHLORPHENIRAMINE
     Indication: Premedication
     Dosage: 12 MILLIGRAM
     Route: 065
     Dates: start: 20231101, end: 20231101
  8. CHLORPHENIRAMINE [Concomitant]
     Active Substance: CHLORPHENIRAMINE
     Dosage: 12 MILLIGRAM
     Route: 065
     Dates: start: 20231108, end: 20231108

REACTIONS (6)
  - Oxygen saturation decreased [Recovering/Resolving]
  - Lung infiltration [Unknown]
  - Confusional state [Recovering/Resolving]
  - Diarrhoea [Unknown]
  - Pyrexia [Recovering/Resolving]
  - Headache [Recovering/Resolving]

NARRATIVE: CASE EVENT DATE: 20231101
